FAERS Safety Report 21345185 (Version 1)
Quarter: 2022Q3

REPORT INFORMATION
  Report Type: Spontaneous
  Country: AU (occurrence: AU)
  Receive Date: 20220916
  Receipt Date: 20220916
  Transmission Date: 20221027
  Serious: Yes (Other)
  Sender: FDA-Public Use
  Company Number: AU-BRISTOL-MYERS SQUIBB COMPANY-2022-107390

PATIENT
  Age: 49 Year
  Sex: Female
  Weight: 49 kg

DRUGS (6)
  1. NIVOLUMAB [Suspect]
     Active Substance: NIVOLUMAB
     Indication: Metastatic malignant melanoma
     Route: 065
     Dates: start: 20211123
  2. IPILIMUMAB [Suspect]
     Active Substance: IPILIMUMAB
     Indication: Malignant melanoma
     Route: 065
     Dates: start: 20211123
  3. DABRAFENIB [DABRAFENIB MESILATE] [Concomitant]
     Indication: Product used for unknown indication
     Dates: start: 202112
  4. TRAMETINIB [TRAMETINIB DIMETHYL SULFOXIDE] [Concomitant]
     Indication: Product used for unknown indication
     Dates: start: 202112
  5. ENCORAFENIB [Concomitant]
     Active Substance: ENCORAFENIB
     Indication: Product used for unknown indication
     Dates: start: 20220131
  6. BINIMETINIB [Concomitant]
     Active Substance: BINIMETINIB
     Indication: Product used for unknown indication
     Dates: start: 20220131

REACTIONS (4)
  - Gastritis [Unknown]
  - Aspergillus test positive [Unknown]
  - Hyperkalaemia [Unknown]
  - Malignant neoplasm progression [Unknown]

NARRATIVE: CASE EVENT DATE: 20211101
